FAERS Safety Report 7741332 (Version 3)
Quarter: 2013Q1

REPORT INFORMATION
  Report Type: Report from Study
  Country: BR (occurrence: BR)
  Receive Date: 20101228
  Receipt Date: 20130211
  Transmission Date: 20140127
  Serious: Yes (Death, Hospitalization)
  Sender: FDA-Public Use
  Company Number: BR-SANOFI-AVENTIS-2010SA077553

PATIENT
  Age: 71 Year
  Sex: Male

DRUGS (2)
  1. LANTUS [Suspect]
     Indication: DIABETES MELLITUS
     Dosage: FORM: CARTRIDGE
     Route: 058
     Dates: start: 2005, end: 2007
  2. UNSPECIFIED INGREDIENT [Suspect]
     Indication: DEVICE THERAPY

REACTIONS (2)
  - Pain [Unknown]
  - Infarction [Fatal]
